FAERS Safety Report 11602486 (Version 4)
Quarter: 2016Q3

REPORT INFORMATION
  Report Type: Report from Study
  Country: US (occurrence: US)
  Receive Date: 20151006
  Receipt Date: 20160725
  Transmission Date: 20161109
  Serious: Yes (Other)
  Sender: FDA-Public Use
  Company Number: US-AMGEN-USASP2015070546

PATIENT
  Age: 74 Year
  Sex: Female
  Weight: 73 kg

DRUGS (2)
  1. SYNTHROID [Concomitant]
     Active Substance: LEVOTHYROXINE SODIUM
     Dosage: 25 MG, QD
     Route: 048
  2. PROLIA [Suspect]
     Active Substance: DENOSUMAB
     Indication: OSTEOPOROSIS
     Dosage: 60 MG, Q6MO
     Route: 058
     Dates: start: 20130916, end: 20150327

REACTIONS (21)
  - Pain [Unknown]
  - Suicidal ideation [Unknown]
  - Renal disorder [Unknown]
  - Jaw disorder [Unknown]
  - Joint stiffness [Not Recovered/Not Resolved]
  - Gait disturbance [Unknown]
  - Tooth disorder [Unknown]
  - Muscular weakness [Unknown]
  - Musculoskeletal pain [Unknown]
  - Mobility decreased [Unknown]
  - Arthralgia [Recovering/Resolving]
  - Asthenia [Not Recovered/Not Resolved]
  - Activities of daily living impaired [Unknown]
  - Balance disorder [Unknown]
  - Myalgia [Unknown]
  - Impaired driving ability [Recovered/Resolved]
  - Impaired work ability [Recovered/Resolved]
  - Muscle disorder [Not Recovered/Not Resolved]
  - Feeling abnormal [Unknown]
  - Arthropathy [Not Recovered/Not Resolved]
  - Musculoskeletal disorder [Not Recovered/Not Resolved]

NARRATIVE: CASE EVENT DATE: 20150715
